FAERS Safety Report 19551187 (Version 1)
Quarter: 2021Q3

REPORT INFORMATION
  Report Type: Spontaneous
  Country: US (occurrence: US)
  Receive Date: 20210715
  Receipt Date: 20210715
  Transmission Date: 20211014
  Serious: Yes (Disabling)
  Sender: FDA-Public Use
  Company Number: None

PATIENT
  Age: 71 Year
  Sex: Female
  Weight: 72 kg

DRUGS (14)
  1. VIT D [Concomitant]
     Active Substance: VITAMIN D NOS
  2. MELATONIN [Concomitant]
     Active Substance: MELATONIN
  3. EVENING PRIMROSE OIL [Concomitant]
     Active Substance: EVENING PRIMROSE OIL\HERBALS
  4. VITAMIN C [Concomitant]
     Active Substance: ASCORBIC ACID
  5. TRAMADOL. [Concomitant]
     Active Substance: TRAMADOL
  6. ESTRACE [Concomitant]
     Active Substance: ESTRADIOL
  7. ZOFRAN [Concomitant]
     Active Substance: ONDANSETRON HYDROCHLORIDE
  8. APRAZOLAM [Concomitant]
  9. FLAXSEED [Concomitant]
     Active Substance: FLAX SEED
  10. PANTOPRAZOLE [Concomitant]
     Active Substance: PANTOPRAZOLE
  11. HUMIRA [Suspect]
     Active Substance: ADALIMUMAB
     Indication: RHEUMATOID ARTHRITIS
     Dosage: OTHER FREQUENCY:WEEKLY;?
     Route: 030
     Dates: start: 20201024, end: 20210701
  12. PROPRANOLOL [Concomitant]
     Active Substance: PROPRANOLOL HYDROCHLORIDE
  13. STIMWAVE (NEUROPATHIC DEVICE) [Concomitant]
  14. GINGER. [Concomitant]
     Active Substance: GINGER

REACTIONS (1)
  - Arthralgia [None]

NARRATIVE: CASE EVENT DATE: 20210701
